FAERS Safety Report 5066367-9 (Version None)
Quarter: 2006Q3

REPORT INFORMATION
  Report Type: 
  Country: None (occurrence: None)
  Receive Date: 20060714
  Receipt Date: 20060518
  Transmission Date: 20061208
  Serious: No
  Sender: FDA-Public Use
  Company Number: 2006SP002098

PATIENT
  Age: 25 Year
  Sex: Male
  Weight: 95.2554 kg

DRUGS (5)
  1. LUNESTA [Suspect]
     Indication: INSOMNIA
     Dosage: 3 MG; ORAL
     Route: 048
     Dates: start: 20060515, end: 20060516
  2. ATIVAN [Concomitant]
  3. ALBUTEROL SPIROS [Concomitant]
  4. ADVAIR DISKUS 100/50 [Concomitant]
  5. TYLENOL [Concomitant]

REACTIONS (4)
  - ANXIETY [None]
  - INSOMNIA [None]
  - NERVOUSNESS [None]
  - PANIC ATTACK [None]
